FAERS Safety Report 25152240 (Version 1)
Quarter: 2025Q2

REPORT INFORMATION
  Report Type: Spontaneous
  Country: JP (occurrence: JP)
  Receive Date: 20250402
  Receipt Date: 20250402
  Transmission Date: 20250716
  Serious: Yes (Hospitalization)
  Sender: EISAI
  Company Number: JP-Eisai-202416901_LEN-RCC_P_1

PATIENT
  Age: 64 Year
  Sex: Male
  Weight: 56 kg

DRUGS (16)
  1. LENVIMA [Suspect]
     Active Substance: LENVATINIB
     Indication: Renal cancer
     Route: 048
     Dates: start: 20240712, end: 20240802
  2. LENVIMA [Suspect]
     Active Substance: LENVATINIB
     Route: 048
     Dates: start: 20240803, end: 20240805
  3. KEYTRUDA [Suspect]
     Active Substance: PEMBROLIZUMAB
     Indication: Renal cancer
     Route: 041
     Dates: start: 20240712, end: 20240712
  4. AMLODIPINE [Concomitant]
     Active Substance: AMLODIPINE BESYLATE
     Indication: Hypertension
  5. AMLODIPINE [Concomitant]
     Active Substance: AMLODIPINE BESYLATE
  6. AMLODIPINE [Concomitant]
     Active Substance: AMLODIPINE BESYLATE
  7. AMLODIPINE [Concomitant]
     Active Substance: AMLODIPINE BESYLATE
  8. TRAMADOL HYDROCHLORIDE [Concomitant]
     Active Substance: TRAMADOL HYDROCHLORIDE
     Indication: Hepatic enzyme increased
  9. CALONAL [Concomitant]
     Active Substance: ACETAMINOPHEN
  10. AMOXICILLIN [Concomitant]
     Active Substance: AMOXICILLIN
     Indication: Periodontitis
     Dates: start: 20240731, end: 20240805
  11. TELMISARTAN [Concomitant]
     Active Substance: TELMISARTAN
     Indication: Hypertension
     Dates: start: 20240731, end: 20240802
  12. AZILSARTAN KAMEDOXOMIL [Concomitant]
     Active Substance: AZILSARTAN KAMEDOXOMIL
     Indication: Hypertension
     Dates: start: 20240803, end: 20240807
  13. TRAMADOL HYDROCHLORIDE [Concomitant]
     Active Substance: TRAMADOL HYDROCHLORIDE
     Dates: start: 20240723, end: 20240806
  14. BETAMETHASONE DIPROPIONATE [Concomitant]
     Active Substance: BETAMETHASONE DIPROPIONATE
     Indication: Drug eruption
     Route: 061
     Dates: start: 20240718, end: 20240802
  15. CLOBETASOL [Concomitant]
     Active Substance: CLOBETASOL
     Indication: Drug eruption
     Route: 061
     Dates: start: 20240802, end: 20240821
  16. BILASTINE [Concomitant]
     Active Substance: BILASTINE
     Indication: Drug eruption

REACTIONS (6)
  - Drug eruption [Recovered/Resolved]
  - Hepatic enzyme increased [Unknown]
  - Hypertension [Unknown]
  - Periodontitis [Unknown]
  - Eyelid oedema [Unknown]
  - Enanthema [Unknown]

NARRATIVE: CASE EVENT DATE: 20240716
